FAERS Safety Report 24130549 (Version 2)
Quarter: 2024Q4

REPORT INFORMATION
  Report Type: Spontaneous
  Country: ES (occurrence: ES)
  Receive Date: 20240724
  Receipt Date: 20241125
  Transmission Date: 20250114
  Serious: Yes (Hospitalization, Other)
  Sender: AUROBINDO
  Company Number: ES-JNJFOC-20240712645

PATIENT
  Age: 18 Year
  Sex: Male

DRUGS (8)
  1. ESCITALOPRAM OXALATE [Suspect]
     Active Substance: ESCITALOPRAM OXALATE
     Indication: Psychotic disorder
     Dosage: 15 MILLIGRAM
     Route: 048
  2. ESLICARBAZEPINE ACETATE [Suspect]
     Active Substance: ESLICARBAZEPINE ACETATE
     Indication: Psychotic disorder
     Dosage: 800 MILLIGRAM
     Route: 048
  3. CLONAZEPAM [Suspect]
     Active Substance: CLONAZEPAM
     Indication: Psychotic disorder
     Dosage: 0.5 MILLIGRAM
     Route: 048
  4. CLOTHIAPINE [Suspect]
     Active Substance: CLOTHIAPINE
     Indication: Psychotic disorder
     Dosage: 40 MILLIGRAM
     Route: 048
  5. LORMETAZEPAM [Suspect]
     Active Substance: LORMETAZEPAM
     Indication: Psychotic disorder
     Dosage: 2 MILLIGRAM
     Route: 048
  6. LEVOTHYROXINE [Suspect]
     Active Substance: LEVOTHYROXINE
     Indication: Psychotic disorder
     Dosage: 25 MILLIGRAM
     Route: 048
  7. PALIPERIDONE [Suspect]
     Active Substance: PALIPERIDONE
     Indication: Psychotic disorder
     Dosage: 6 MILLIGRAM
     Route: 048
  8. PALIPERIDONE [Suspect]
     Active Substance: PALIPERIDONE
     Dosage: 9 MILLIGRAM
     Route: 048

REACTIONS (2)
  - Suicide attempt [Recovered/Resolved]
  - Overdose [Recovered/Resolved]
